FAERS Safety Report 9304106 (Version 2)
Quarter: 2013Q2

REPORT INFORMATION
  Report Type: Spontaneous
  Country: JP (occurrence: JP)
  Receive Date: 20130522
  Receipt Date: 20130612
  Transmission Date: 20140414
  Serious: Yes (Disabling, Other)
  Sender: FDA-Public Use
  Company Number: JP-ACTAVIS-2013-08728

PATIENT
  Age: 29 Year
  Sex: Female

DRUGS (4)
  1. ROPIVACAINE [Suspect]
     Indication: EPIDURAL ANAESTHESIA
     Dosage: 0.2%
     Route: 008
  2. MORPHINE SULFATE (UNKNOWN) [Suspect]
     Indication: EPIDURAL ANAESTHESIA
     Dosage: UNK
     Route: 008
  3. BUPIVACAINE (UNKNOWN) [Suspect]
     Indication: SPINAL ANAESTHESIA
     Dosage: 2.4 ML BUPIVACAINE 0.5%
     Route: 050
  4. DROLEPTAN [Suspect]
     Indication: EPIDURAL ANAESTHESIA
     Dosage: UNK
     Route: 008

REACTIONS (5)
  - Arachnoiditis [Not Recovered/Not Resolved]
  - Acquired syringomyelia [Not Recovered/Not Resolved]
  - Arachnoid cyst [Not Recovered/Not Resolved]
  - Paraplegia [Not Recovered/Not Resolved]
  - Maternal exposure during delivery [Unknown]
